FAERS Safety Report 8827440 (Version 1)
Quarter: 2012Q4

REPORT INFORMATION
  Report Type: 
  Country: US (occurrence: US)
  Receive Date: 20121005
  Receipt Date: 20121005
  Transmission Date: 20130627
  Serious: No
  Sender: FDA-Public Use
  Company Number: US-BRISTOL-MYERS SQUIBB COMPANY-16700866

PATIENT
  Age: 75 Year
  Sex: Male

DRUGS (4)
  1. AVAPRO [Suspect]
     Dosage: next refill was Apr2012
20Jun2011 to 08Nov2011: did not get refill Avapro
     Dates: start: 200911
  2. FLOMAX [Concomitant]
  3. LOPID [Concomitant]
  4. METOPROLOL [Concomitant]
     Dosage: Metoprolol ER

REACTIONS (1)
  - Treatment noncompliance [Unknown]
